FAERS Safety Report 24177953 (Version 1)
Quarter: 2024Q3

REPORT INFORMATION
  Report Type: Spontaneous
  Country: US (occurrence: US)
  Receive Date: 20240806
  Receipt Date: 20240806
  Transmission Date: 20241016
  Serious: No
  Sender: Haleon PLC
  Company Number: US-HALEON-2190577

PATIENT

DRUGS (1)
  1. ADVIL [Suspect]
     Active Substance: IBUPROFEN\IBUPROFEN SODIUM
     Indication: Product used for unknown indication
     Route: 048

REACTIONS (1)
  - Product use complaint [Unknown]
